FAERS Safety Report 8747726 (Version 2)
Quarter: 2012Q4

REPORT INFORMATION
  Report Type: 
  Country: FR (occurrence: FR)
  Receive Date: 20120827
  Receipt Date: 20120828
  Transmission Date: 20130627
  Serious: Yes (Other)
  Sender: FDA-Public Use
  Company Number: FR-UCBSA-064001

PATIENT
  Age: 63 Year
  Sex: Female

DRUGS (6)
  1. KEPPRA [Suspect]
     Route: 048
     Dates: start: 20120708
  2. PREDNISONE [Concomitant]
     Indication: VIITH NERVE PARALYSIS
     Dosage: INITIALLY 60 MG WITH PREOGRESSIVE DECREASE IN DAILY DOSE UPTO 5 MG
     Route: 048
     Dates: start: 201207
  3. TAHOR [Concomitant]
     Route: 048
  4. COUMADINE [Concomitant]
     Route: 048
  5. LEVOTHYROX [Concomitant]
     Dosage: DOSE: 50 mcg
     Route: 048
  6. URBANYL [Concomitant]
     Dates: end: 201207

REACTIONS (1)
  - Hyponatraemia [Not Recovered/Not Resolved]
